FAERS Safety Report 12396870 (Version 1)
Quarter: 2016Q2

REPORT INFORMATION
  Report Type: Spontaneous
  Country: US (occurrence: None)
  Receive Date: 20160523
  Receipt Date: 20160523
  Transmission Date: 20160815
  Serious: Yes (Disabling, Other)
  Sender: FDA-Public Use
  Company Number: None

PATIENT
  Age: 19 Year
  Sex: Male
  Weight: 48.99 kg

DRUGS (1)
  1. PROMETHAZINE INJECTION, 25MG WESTWARD [Suspect]
     Active Substance: PROMETHAZINE HYDROCHLORIDE
     Indication: NAUSEA
     Dosage: 1 INJECTION (S) ONE DOSE INTO THE MUSCLE
     Route: 030
     Dates: start: 20160406, end: 20160406

REACTIONS (1)
  - Injection site necrosis [None]

NARRATIVE: CASE EVENT DATE: 20160406
